FAERS Safety Report 11884965 (Version 1)
Quarter: 2015Q4

REPORT INFORMATION
  Report Type: Spontaneous
  Country: US (occurrence: None)
  Receive Date: 20151231
  Receipt Date: 20151231
  Transmission Date: 20160305
  Serious: Yes (Hospitalization)
  Sender: FDA-Public Use
  Company Number: None

PATIENT
  Age: 63 Year
  Sex: Male
  Weight: 56.8 kg

DRUGS (1)
  1. LIRAGLUTIDE [Suspect]
     Active Substance: LIRAGLUTIDE
     Route: 058
     Dates: start: 20150901, end: 20150925

REACTIONS (2)
  - Acute kidney injury [None]
  - Diarrhoea [None]

NARRATIVE: CASE EVENT DATE: 20150922
